FAERS Safety Report 18013925 (Version 1)
Quarter: 2020Q3

REPORT INFORMATION
  Report Type: Spontaneous
  Country: US (occurrence: US)
  Receive Date: 20200711
  Receipt Date: 20200711
  Transmission Date: 20201103
  Serious: Yes (Hospitalization)
  Sender: FDA-Public Use
  Company Number: None

PATIENT
  Sex: Male
  Weight: 87.4 kg

DRUGS (1)
  1. ABIRATERONE ACETATE. [Suspect]
     Active Substance: ABIRATERONE ACETATE

REACTIONS (5)
  - Atrial fibrillation [None]
  - Urinary tract obstruction [None]
  - Hyperkalaemia [None]
  - Electrocardiogram QT prolonged [None]
  - Haemoglobin decreased [None]

NARRATIVE: CASE EVENT DATE: 20200515
